FAERS Safety Report 13281819 (Version 1)
Quarter: 2017Q1

REPORT INFORMATION
  Report Type: Spontaneous
  Country: US (occurrence: US)
  Receive Date: 20170301
  Receipt Date: 20170301
  Transmission Date: 20170428
  Serious: No
  Sender: FDA-Public Use
  Company Number: US-INCYTE CORPORATION-2017IN001234

PATIENT
  Sex: Male

DRUGS (2)
  1. JAKAFI [Suspect]
     Active Substance: RUXOLITINIB
     Dosage: UNK
     Route: 048
  2. JAKAFI [Suspect]
     Active Substance: RUXOLITINIB
     Dosage: 10 MG, TAKE ONE TABLET IN THE AM AND TWO TABLETS IN THE PM
     Route: 048
     Dates: start: 20141127

REACTIONS (2)
  - Blood creatinine increased [Unknown]
  - Haemoglobin decreased [Unknown]
